FAERS Safety Report 5797707-0 (Version None)
Quarter: 2008Q3

REPORT INFORMATION
  Report Type: 
  Country: None (occurrence: None)
  Receive Date: 20080702
  Receipt Date: 20080630
  Transmission Date: 20090109
  Serious: Yes (Hospitalization, Other)
  Sender: FDA-Public Use
  Company Number: FR-BRISTOL-MYERS SQUIBB COMPANY-14166094

PATIENT
  Age: 25 Year
  Sex: Female
  Weight: 80 kg

DRUGS (2)
  1. ABILIFY [Suspect]
     Indication: PSYCHOTIC DISORDER
     Dosage: TAKEN SINCE OCTOBER OR NOVEMBER. ONGOING AT 30MG/DAY.
     Route: 048
     Dates: start: 20060915
  2. ABILIFY [Suspect]
     Indication: DELUSION
     Dosage: TAKEN SINCE OCTOBER OR NOVEMBER. ONGOING AT 30MG/DAY.
     Route: 048
     Dates: start: 20060915

REACTIONS (5)
  - AGGRESSION [None]
  - AMNESIA [None]
  - DELUSION [None]
  - DISSOCIATIVE DISORDER [None]
  - PHYSICAL ASSAULT [None]
